FAERS Safety Report 12704038 (Version 1)
Quarter: 2016Q3

REPORT INFORMATION
  Report Type: Report from Study
  Country: AT (occurrence: AT)
  Receive Date: 20160831
  Receipt Date: 20160831
  Transmission Date: 20161109
  Serious: Yes (Hospitalization)
  Sender: FDA-Public Use
  Company Number: AT-ABBVIE-16K-009-1713129-00

PATIENT
  Sex: Female

DRUGS (1)
  1. DUODOPA [Suspect]
     Active Substance: CARBIDOPA\LEVODOPA
     Indication: PARKINSON^S DISEASE
     Dosage: MD: 8.5ML, ED: 2.2ML, CR: 4.1ML
     Route: 050
     Dates: start: 20160112

REACTIONS (3)
  - Bezoar [Unknown]
  - Ileus [Unknown]
  - Device kink [Unknown]

NARRATIVE: CASE EVENT DATE: 2016
